FAERS Safety Report 8194801-4 (Version None)
Quarter: 2012Q1

REPORT INFORMATION
  Report Type: 
  Country: None (occurrence: None)
  Receive Date: 20120308
  Receipt Date: 20110404
  Transmission Date: 20120608
  Serious: No
  Sender: FDA-Public Use
  Company Number: US-GLAXOSMITHKLINE-A0921228A

PATIENT
  Age: 57 Year
  Sex: Male

DRUGS (3)
  1. NICORETTE [Suspect]
     Indication: EX-TOBACCO USER
     Dates: end: 20110403
  2. NICODERM CQ [Suspect]
     Indication: EX-TOBACCO USER
  3. COMMIT [Suspect]
     Indication: EX-TOBACCO USER

REACTIONS (4)
  - DRUG ADMINISTRATION ERROR [None]
  - DRUG INEFFECTIVE [None]
  - PRODUCT QUALITY ISSUE [None]
  - DYSGEUSIA [None]
